FAERS Safety Report 17115776 (Version 1)
Quarter: 2019Q4

REPORT INFORMATION
  Report Type: Spontaneous
  Country: US (occurrence: US)
  Receive Date: 20191204
  Receipt Date: 20191204
  Transmission Date: 20200122
  Serious: Yes (Life-Threatening, Disabling, Other)
  Sender: FDA-Public Use
  Company Number: None

PATIENT
  Age: 24 Year
  Sex: Male
  Weight: 81 kg

DRUGS (13)
  1. TOUJEO [Suspect]
     Active Substance: INSULIN GLARGINE
     Indication: TYPE 1 DIABETES MELLITUS
     Dosage: ?          OTHER STRENGTH:INSULIN UNIT;QUANTITY:46 INSULIN UNITS;OTHER ROUTE:SUBCUTANEOUS INJECTION?
     Route: 058
  2. ALBUTEROL. [Concomitant]
     Active Substance: ALBUTEROL
  3. MELATONIN [Concomitant]
     Active Substance: MELATONIN
  4. GLUCOSE [Concomitant]
     Active Substance: DEXTROSE
  5. ZYRTEC [Concomitant]
     Active Substance: CETIRIZINE HYDROCHLORIDE
  6. FAMOTIDINE. [Concomitant]
     Active Substance: FAMOTIDINE
  7. BREO ELLIPTA [Concomitant]
     Active Substance: FLUTICASONE FUROATE\VILANTEROL TRIFENATATE
  8. NOVOLOG [Concomitant]
     Active Substance: INSULIN ASPART
  9. FLONASE [Concomitant]
     Active Substance: FLUTICASONE PROPIONATE
  10. VITAMIN D [Concomitant]
     Active Substance: VITAMIN D NOS
  11. SINGULAIR [Concomitant]
     Active Substance: MONTELUKAST SODIUM
  12. GLUCAGON. [Concomitant]
     Active Substance: GLUCAGON
  13. EPIPEN [Concomitant]
     Active Substance: EPINEPHRINE

REACTIONS (3)
  - Treatment failure [None]
  - Blood glucose decreased [None]
  - Device effect variable [None]

NARRATIVE: CASE EVENT DATE: 20191118
